FAERS Safety Report 6315026-0 (Version None)
Quarter: 2009Q3

REPORT INFORMATION
  Report Type: 
  Country: None (occurrence: None)
  Receive Date: 20090819
  Receipt Date: 20090813
  Transmission Date: 20100115
  Serious: Yes (Other)
  Sender: FDA-Public Use
  Company Number: DE-GENENTECH-288659

PATIENT
  Sex: Male
  Weight: 141 kg

DRUGS (8)
  1. BEVACIZUMAB [Suspect]
     Indication: COLORECTAL CANCER METASTATIC
     Dosage: 500 MG, Q2W
     Route: 042
     Dates: start: 20080519
  2. IRINOTECAN HCL [Suspect]
     Indication: COLORECTAL CANCER METASTATIC
     Dosage: 360 MG, Q2W
     Route: 042
     Dates: start: 20080519
  3. FLUOROURACIL [Suspect]
     Indication: COLORECTAL CANCER METASTATIC
     Dosage: 5600 MG, Q2W
     Route: 042
     Dates: start: 20080519
  4. FOLINIC ACID [Suspect]
     Indication: COLORECTAL CANCER METASTATIC
     Dosage: 800 MG, Q2W
     Route: 042
     Dates: start: 20090519
  5. ALLOPURINOL [Concomitant]
     Indication: DRUG USE FOR UNKNOWN INDICATION
     Dosage: UNK
  6. METFORMIN [Concomitant]
     Indication: DRUG USE FOR UNKNOWN INDICATION
     Dosage: UNK
  7. RAMIPRIL [Concomitant]
     Indication: DRUG USE FOR UNKNOWN INDICATION
     Dosage: UNK
  8. VOLTAREN [Concomitant]
     Indication: DRUG USE FOR UNKNOWN INDICATION
     Dosage: UNK

REACTIONS (2)
  - METASTASES TO LUNG [None]
  - PNEUMONIA FUNGAL [None]
